FAERS Safety Report 7627503-0 (Version None)
Quarter: 2011Q3

REPORT INFORMATION
  Report Type: 
  Country: None (occurrence: None)
  Receive Date: 20110721
  Receipt Date: 20110715
  Transmission Date: 20111222
  Serious: Yes (Other)
  Sender: FDA-Public Use
  Company Number: US-PFIZER INC-2011141258

PATIENT
  Sex: Male

DRUGS (2)
  1. GENOTROPIN [Suspect]
     Indication: GROWTH HORMONE DEFICIENCY
     Dosage: 1.7 MG, 1X/DAY
     Route: 058
     Dates: start: 20110618, end: 20110624
  2. CLARITIN [Concomitant]
     Dosage: UNK
     Dates: start: 20101130

REACTIONS (3)
  - POST-TRAUMATIC NECK SYNDROME [None]
  - POOR QUALITY DRUG ADMINISTERED [None]
  - ROAD TRAFFIC ACCIDENT [None]
